FAERS Safety Report 7606084-1 (Version None)
Quarter: 2011Q3

REPORT INFORMATION
  Report Type: 
  Country: None (occurrence: None)
  Receive Date: 20110713
  Receipt Date: 20110707
  Transmission Date: 20111222
  Serious: Yes (Other)
  Sender: FDA-Public Use
  Company Number: US-ELI_LILLY_AND_COMPANY-US201107001967

PATIENT
  Age: 53 Year
  Sex: Female
  Weight: 133.79 kg

DRUGS (6)
  1. BYETTA [Suspect]
     Indication: TYPE 2 DIABETES MELLITUS
     Dosage: UNK, BID
     Route: 058
     Dates: start: 20110131, end: 20110421
  2. GABAPENTIN [Concomitant]
  3. NOVOLOG [Concomitant]
     Dosage: UNK, PRN
  4. METFORMIN HCL [Concomitant]
  5. GLYBURIDE [Concomitant]
  6. ULTRAM [Concomitant]

REACTIONS (2)
  - PANCREATITIS [None]
  - OFF LABEL USE [None]
